FAERS Safety Report 9649087 (Version 1)
Quarter: 2013Q4

REPORT INFORMATION
  Report Type: Spontaneous
  Country: FR (occurrence: FR)
  Receive Date: 20131028
  Receipt Date: 20131028
  Transmission Date: 20140711
  Serious: Yes (Hospitalization)
  Sender: FDA-Public Use
  Company Number: FR-ELI_LILLY_AND_COMPANY-FR201310005587

PATIENT
  Age: 48 Year
  Sex: Male

DRUGS (1)
  1. EFIENT [Suspect]
     Indication: STENT PLACEMENT
     Route: 048

REACTIONS (1)
  - Thrombosis in device [Recovered/Resolved]
